FAERS Safety Report 5763087-X (Version None)
Quarter: 2008Q2

REPORT INFORMATION
  Report Type: 
  Country: None (occurrence: None)
  Receive Date: 20080609
  Receipt Date: 20080528
  Transmission Date: 20081010
  Serious: Yes (Hospitalization)
  Sender: FDA-Public Use
  Company Number: JP-PFIZER INC-2008040454

PATIENT
  Sex: Female
  Weight: 38.4 kg

DRUGS (13)
  1. EPLERENONE [Suspect]
     Indication: CARDIAC FAILURE CONGESTIVE
     Dosage: DAILY DOSE:50MG
     Route: 048
     Dates: start: 20080330, end: 20080428
  2. CARVEDILOL [Suspect]
     Indication: CARDIAC FAILURE CONGESTIVE
     Route: 048
     Dates: start: 20080409, end: 20080417
  3. CARVEDILOL [Suspect]
     Route: 048
  4. LASIX [Suspect]
     Indication: CARDIAC FAILURE CONGESTIVE
     Route: 048
     Dates: start: 20080330, end: 20080428
  5. WARFARIN SODIUM [Suspect]
     Indication: THROMBOSIS PROPHYLAXIS
     Route: 048
     Dates: start: 20080328, end: 20080330
  6. WARFARIN SODIUM [Suspect]
     Dates: start: 20080331, end: 20080402
  7. WARFARIN SODIUM [Suspect]
     Dates: start: 20080403, end: 20080425
  8. NU LOTAN [Suspect]
     Indication: CARDIAC FAILURE CONGESTIVE
     Route: 048
  9. LOCHOL [Suspect]
     Indication: HYPERLIPIDAEMIA
     Dosage: TEXT:1 DF QD
     Route: 048
     Dates: start: 20080409, end: 20080506
  10. MAGNESIUM OXIDE [Concomitant]
     Route: 048
  11. LOXONIN [Concomitant]
     Route: 048
     Dates: start: 20080423, end: 20080423
  12. PL [Concomitant]
     Route: 048
     Dates: start: 20080425, end: 20080425
  13. OLMETEC [Concomitant]
     Indication: CARDIAC FAILURE CONGESTIVE

REACTIONS (4)
  - HEPATIC CONGESTION [None]
  - HEPATIC FUNCTION ABNORMAL [None]
  - HEPATITIS VIRAL [None]
  - UPPER RESPIRATORY TRACT INFLAMMATION [None]
